FAERS Safety Report 15448414 (Version 1)
Quarter: 2018Q3

REPORT INFORMATION
  Report Type: Spontaneous
  Country: US (occurrence: US)
  Receive Date: 20180929
  Receipt Date: 20180929
  Transmission Date: 20181010
  Serious: No
  Sender: FDA-Public Use
  Company Number: US-TEVA-2018-US-958907

PATIENT
  Sex: Female

DRUGS (1)
  1. DISULFIRAM. [Suspect]
     Active Substance: DISULFIRAM
     Route: 065

REACTIONS (2)
  - Wrong technique in product usage process [Unknown]
  - Product counterfeit [Unknown]
